FAERS Safety Report 6792591-0 (Version None)
Quarter: 2010Q2

REPORT INFORMATION
  Report Type: 
  Country: None (occurrence: None)
  Receive Date: 20100624
  Receipt Date: 20080910
  Transmission Date: 20101027
  Serious: No
  Sender: FDA-Public Use
  Company Number: US-PFIZER INC-2008075539

PATIENT
  Sex: Male
  Weight: 74.1 kg

DRUGS (3)
  1. GEODON [Suspect]
     Indication: BIPOLAR I DISORDER
     Dates: start: 20080101
  2. RISPERIDONE [Concomitant]
     Indication: POST-TRAUMATIC STRESS DISORDER
  3. TOPAMAX [Concomitant]
     Indication: POST-TRAUMATIC STRESS DISORDER

REACTIONS (6)
  - ABDOMINAL PAIN UPPER [None]
  - DIZZINESS [None]
  - DRUG INEFFECTIVE [None]
  - HEADACHE [None]
  - TREMOR [None]
  - WEIGHT DECREASED [None]
